FAERS Safety Report 9237957 (Version 1)
Quarter: 2013Q2

REPORT INFORMATION
  Report Type: Spontaneous
  Country: US (occurrence: US)
  Receive Date: 20130418
  Receipt Date: 20130418
  Transmission Date: 20140414
  Serious: Yes (Other)
  Sender: FDA-Public Use
  Company Number: US-BAYER-2013-046237

PATIENT
  Age: 19 Year
  Sex: Female

DRUGS (1)
  1. SKYLA [Suspect]
     Dosage: UNK UNK, CONT
     Route: 015
     Dates: start: 20130321

REACTIONS (3)
  - Post procedural haemorrhage [None]
  - Abdominal pain [None]
  - Dysmenorrhoea [None]
